FAERS Safety Report 5737524-0 (Version None)
Quarter: 2008Q2

REPORT INFORMATION
  Report Type: 
  Country: None (occurrence: None)
  Receive Date: 20080513
  Receipt Date: 20080513
  Transmission Date: 20081010
  Serious: No
  Sender: FDA-Public Use
  Company Number: None

PATIENT
  Age: 63 Year
  Sex: Male
  Weight: 70.3075 kg

DRUGS (1)
  1. CREST PRO-HEALTH RINSE PROCTOR + GAMBLE [Suspect]
     Indication: DENTAL DISORDER PROPHYLAXIS
     Dosage: 1 OZ DAILY
     Dates: start: 20080302, end: 20080505

REACTIONS (1)
  - DEVICE INTERACTION [None]
